FAERS Safety Report 13167042 (Version 1)
Quarter: 2017Q1

REPORT INFORMATION
  Report Type: Spontaneous
  Country: FR (occurrence: FR)
  Receive Date: 20170131
  Receipt Date: 20170131
  Transmission Date: 20170428
  Serious: Yes (Hospitalization)
  Sender: FDA-Public Use
  Company Number: FR-SA-2017SA015329

PATIENT
  Age: 85 Year
  Sex: Female

DRUGS (7)
  1. STAGID [Concomitant]
     Active Substance: METFORMIN PAMOATE
  2. LIPANTHYL [Concomitant]
     Active Substance: FENOFIBRATE
  3. INEXIUM [Concomitant]
     Active Substance: ESOMEPRAZOLE
  4. APROVEL [Suspect]
     Active Substance: IRBESARTAN
     Route: 048
     Dates: end: 20160722
  5. LEVOTHYROX [Concomitant]
     Active Substance: LEVOTHYROXINE
  6. LOGIFLOX [Concomitant]
     Active Substance: LOMEFLOXACIN
  7. IBUPROFENE [Suspect]
     Active Substance: IBUPROFEN
     Route: 048
     Dates: start: 20160717, end: 20160721

REACTIONS (1)
  - Acute kidney injury [Recovered/Resolved]

NARRATIVE: CASE EVENT DATE: 20160722
